FAERS Safety Report 7250596-X (Version None)
Quarter: 2011Q1

REPORT INFORMATION
  Report Type: 
  Country: None (occurrence: None)
  Receive Date: 20110128
  Receipt Date: 20110117
  Transmission Date: 20110831
  Serious: Yes (Hospitalization)
  Sender: FDA-Public Use
  Company Number: PHHY2011SA04345

PATIENT
  Age: 20 Year
  Sex: Female

DRUGS (1)
  1. CITALOPRAM [Suspect]
     Dosage: 90 DF, QD

REACTIONS (10)
  - SINUS TACHYCARDIA [None]
  - METABOLIC ACIDOSIS [None]
  - COMA [None]
  - WHITE BLOOD CELL COUNT INCREASED [None]
  - GRAND MAL CONVULSION [None]
  - TACHYCARDIA [None]
  - HYPOTENSION [None]
  - INTENTIONAL OVERDOSE [None]
  - SUICIDE ATTEMPT [None]
  - TACHYPNOEA [None]
